FAERS Safety Report 8593656-3 (Version None)
Quarter: 2012Q3

REPORT INFORMATION
  Report Type: 
  Country: None (occurrence: None)
  Receive Date: 20120814
  Receipt Date: 20120809
  Transmission Date: 20120928
  Serious: Yes (Hospitalization, Disabling, Other)
  Sender: FDA-Public Use
  Company Number: US-009507513-2012SP020668

PATIENT

DRUGS (16)
  1. PREDNISONE TAB [Concomitant]
     Dosage: UNK
     Dates: start: 20030808, end: 20111108
  2. METRONIDAZOLE [Concomitant]
     Dosage: UNK
     Dates: start: 20031016, end: 20101103
  3. FLUCONAZOLE [Concomitant]
     Dosage: UNK
     Dates: start: 20051030, end: 20101103
  4. AZITHROMYCIN [Concomitant]
     Dosage: UNK
     Dates: start: 20051129, end: 20110525
  5. HYDROCODONE BITARTRATE [Concomitant]
     Dosage: UNK
     Dates: start: 20020815, end: 20111130
  6. SULFAMERAZINE (+) TRIMETHOPRIM [Concomitant]
     Dosage: UNK
     Dates: start: 20070510, end: 20101209
  7. DIPHENHYDRAMINE HCL [Concomitant]
     Dosage: UNK
     Dates: start: 20080519, end: 20110620
  8. IBUPROFEN [Concomitant]
     Dosage: UNK
     Dates: start: 20020315, end: 20110310
  9. NITROFURANTOIN [Concomitant]
     Dosage: UNK
     Dates: start: 20070502, end: 20091219
  10. CEPHALEXIN [Concomitant]
     Dosage: UNK
     Dates: start: 20030225, end: 20101201
  11. ACETAMINOPHEN [Concomitant]
     Dosage: UNK
     Dates: start: 20060516, end: 20100905
  12. PROCHLORPERAZINE [Concomitant]
     Dosage: UNK
     Dates: start: 20081130, end: 20101014
  13. MORPHINE [Concomitant]
     Dosage: UNK
     Dates: start: 20080519, end: 20101229
  14. NUVARING [Suspect]
     Indication: CONTRACEPTION
     Dosage: UNK
     Dates: start: 20090401, end: 20100608
  15. FAMOTIDINE [Concomitant]
     Dosage: UNK
     Dates: start: 20080303, end: 20110310
  16. FOLIC ACID [Concomitant]
     Indication: SICKLE CELL ANAEMIA
     Dosage: 1 MG, QD

REACTIONS (9)
  - DYSPNOEA [None]
  - PAIN IN EXTREMITY [None]
  - OVARIAN CYST [None]
  - OEDEMA PERIPHERAL [None]
  - SICKLE CELL ANAEMIA WITH CRISIS [None]
  - PULMONARY EMBOLISM [None]
  - CARPAL TUNNEL SYNDROME [None]
  - CHEST PAIN [None]
  - INFECTION [None]
